FAERS Safety Report 19742061 (Version 1)
Quarter: 2021Q3

REPORT INFORMATION
  Report Type: Spontaneous
  Country: IT (occurrence: IT)
  Receive Date: 20210825
  Receipt Date: 20210825
  Transmission Date: 20211014
  Serious: Yes (Hospitalization)
  Sender: FDA-Public Use
  Company Number: IT-TEVA-2021-IT-1944478

PATIENT
  Age: 8 Year
  Sex: Female

DRUGS (2)
  1. ETOPOSIDE. [Suspect]
     Active Substance: ETOPOSIDE
     Indication: EWING^S SARCOMA
     Dosage: RECEIVED 3 CYCLES; ADJUVANT CHEMOTHERAPY
     Route: 065
  2. IPHOSPHAMIDE [Suspect]
     Active Substance: IFOSFAMIDE
     Indication: EWING^S SARCOMA
     Dosage: RECEIVED 3 CYCLES; ADJUVANT CHEMOTHERAPY
     Route: 065

REACTIONS (1)
  - Lung adenocarcinoma [Recovered/Resolved]
